FAERS Safety Report 19177827 (Version 4)
Quarter: 2025Q3

REPORT INFORMATION
  Report Type: Spontaneous
  Country: EU (occurrence: EU)
  Receive Date: 20210426
  Receipt Date: 20250813
  Transmission Date: 20251020
  Serious: Yes (Other)
  Sender: AUROBINDO
  Company Number: EU-AEMPS-820036

PATIENT
  Age: 7 Year
  Sex: Female
  Weight: 24.9 kg

DRUGS (3)
  1. TOPIRAMATE [Suspect]
     Active Substance: TOPIRAMATE
     Indication: Migraine prophylaxis
     Dosage: 12.5 MILLIGRAM, TWO TIMES A DAY (MEDIO COMP/12 H)
     Route: 048
     Dates: start: 20190312, end: 20190329
  2. TOPIRAMATE [Suspect]
     Active Substance: TOPIRAMATE
     Dosage: 25 MILLIGRAM, TWO TIMES A DAY
     Route: 065
  3. TOPIRAMATE [Suspect]
     Active Substance: TOPIRAMATE
     Route: 065

REACTIONS (9)
  - Affective disorder [Recovered/Resolved]
  - Aggression [Recovered/Resolved]
  - Hallucination, visual [Recovered/Resolved]
  - Hallucination, tactile [Recovered/Resolved]
  - Suicidal ideation [Recovered/Resolved]
  - Frustration tolerance decreased [Recovered/Resolved]
  - Negativism [Recovered/Resolved]
  - Mood swings [Recovered/Resolved]
  - Product use issue [Unknown]

NARRATIVE: CASE EVENT DATE: 20190320
